FAERS Safety Report 9305536 (Version 1)
Quarter: 2013Q2

REPORT INFORMATION
  Report Type: Report from Study
  Country: GB (occurrence: GB)
  Receive Date: 20130523
  Receipt Date: 20130523
  Transmission Date: 20140414
  Serious: Yes (Hospitalization)
  Sender: FDA-Public Use
  Company Number: GB-ROCHE-1226614

PATIENT
  Sex: Male
  Weight: 87 kg

DRUGS (5)
  1. TOCILIZUMAB [Suspect]
     Indication: PRODUCT USED FOR UNKNOWN INDICATION
     Dosage: LAST DOSE PRIOR TO SAE 23/OCT/2012
     Route: 065
     Dates: start: 20120823
  2. METHOTREXATE [Concomitant]
  3. PHENYLEPHRINE [Concomitant]
  4. HEPARIN [Concomitant]
  5. INTEGRILIN [Concomitant]

REACTIONS (2)
  - Acute myocardial infarction [Unknown]
  - Cardiac arrest [Unknown]
